FAERS Safety Report 14713924 (Version 2)
Quarter: 2018Q2

REPORT INFORMATION
  Report Type: Spontaneous
  Country: AU (occurrence: AU)
  Receive Date: 20180404
  Receipt Date: 20180422
  Transmission Date: 20180711
  Serious: Yes (Other)
  Sender: FDA-Public Use
  Company Number: AU-APOTEX-2018AP009627

PATIENT
  Age: 47 Year
  Sex: Male

DRUGS (1)
  1. MIRTAZAPINE. [Suspect]
     Active Substance: MIRTAZAPINE
     Indication: DEPRESSION
     Dosage: UNK
     Route: 065
     Dates: start: 2016

REACTIONS (6)
  - Weight increased [Recovering/Resolving]
  - Increased appetite [Unknown]
  - Blood glucose increased [Unknown]
  - Non-alcoholic steatohepatitis [Unknown]
  - Hypertriglyceridaemia [Recovering/Resolving]
  - Binge eating [Unknown]
